FAERS Safety Report 5714449-8 (Version None)
Quarter: 2008Q2

REPORT INFORMATION
  Report Type: 
  Country: None (occurrence: None)
  Receive Date: 20080423
  Receipt Date: 20080417
  Transmission Date: 20081010
  Serious: Yes (Other)
  Sender: FDA-Public Use
  Company Number: CA-ASTRAZENECA-2008UW07986

PATIENT

DRUGS (3)
  1. ARIMIDEX [Suspect]
     Route: 048
     Dates: start: 20030101
  2. ALTACE [Concomitant]
     Dates: start: 20050101
  3. CLONAZEPAM [Concomitant]

REACTIONS (1)
  - HAEMOCHROMATOSIS [None]
